FAERS Safety Report 10060835 (Version 3)
Quarter: 2014Q2

REPORT INFORMATION
  Report Type: Report from Study
  Country: UY (occurrence: UY)
  Receive Date: 20140404
  Receipt Date: 20140422
  Transmission Date: 20141212
  Serious: Yes (Hospitalization, Other)
  Sender: FDA-Public Use
  Company Number: UY-ABBVIE-12P-168-0991842-00

PATIENT
  Sex: Female

DRUGS (8)
  1. HUMIRA [Suspect]
     Indication: RHEUMATOID ARTHRITIS
     Route: 058
     Dates: start: 20120501, end: 201403
  2. LORATADINE [Concomitant]
     Indication: HYPERSENSITIVITY
     Route: 048
  3. NASAL DESCONGESTIVEL [Concomitant]
     Indication: RHINITIS
     Route: 045
     Dates: end: 20121002
  4. METHOTREXATE [Concomitant]
     Indication: RHEUMATOID ARTHRITIS
     Dosage: 15MG PER WEEK
     Route: 048
  5. HYDROXICHLOROQUINE [Concomitant]
     Indication: RHEUMATOID ARTHRITIS
     Route: 048
  6. METIREL [Concomitant]
     Indication: PRODUCT USED FOR UNKNOWN INDICATION
  7. PREGABALIN [Concomitant]
     Indication: PRODUCT USED FOR UNKNOWN INDICATION
  8. KEPTOFREN [Concomitant]
     Indication: FIBROMYALGIA
     Route: 050

REACTIONS (9)
  - Chronic sinusitis [Not Recovered/Not Resolved]
  - Headache [Unknown]
  - Rhinorrhoea [Unknown]
  - Anosmia [Not Recovered/Not Resolved]
  - Muscle spasms [Unknown]
  - Spinal pain [Unknown]
  - Skin mass [Recovering/Resolving]
  - Alopecia [Not Recovered/Not Resolved]
  - Headache [Not Recovered/Not Resolved]
